FAERS Safety Report 10522304 (Version 1)
Quarter: 2014Q4

REPORT INFORMATION
  Report Type: Spontaneous
  Country: US (occurrence: None)
  Receive Date: 20141010
  Receipt Date: 20141010
  Transmission Date: 20150528
  Serious: Yes (Death, Other)
  Sender: FDA-Public Use
  Company Number: VAL_03475_2014

PATIENT
  Age: 62 Year
  Sex: Male

DRUGS (23)
  1. ZOLPIDEM [Concomitant]
     Active Substance: ZOLPIDEM\ZOLPIDEM TARTRATE
  2. CLONIDINE. [Suspect]
     Active Substance: CLONIDINE
     Indication: HYPERTENSION
     Dosage: 1X/24 HOURS
  3. LENALIDOMIDE [Concomitant]
     Active Substance: LENALIDOMIDE
  4. ESOMEPRAZOLE [Concomitant]
     Active Substance: ESOMEPRAZOLE
  5. TRAMADOL [Concomitant]
     Active Substance: TRAMADOL
  6. CARFILZOMIB [Suspect]
     Active Substance: CARFILZOMIB
     Indication: PRODUCT USED FOR UNKNOWN INDICATION
  7. ACYCLOVIR /00587301/ [Concomitant]
     Active Substance: ACYCLOVIR
  8. DEXAMETHASONE. [Suspect]
     Active Substance: DEXAMETHASONE
     Indication: PRODUCT USED FOR UNKNOWN INDICATION
     Dosage: (DF)
  9. BORTEZOMIB [Suspect]
     Active Substance: BORTEZOMIB
     Indication: PLASMA CELL MYELOMA
     Dosage: (DF)
  10. VALSARTAN. [Concomitant]
     Active Substance: VALSARTAN
  11. BORTEZOMIB [Concomitant]
     Active Substance: BORTEZOMIB
  12. METOPROLOL [Suspect]
     Active Substance: METOPROLOL
     Indication: HYPERTENSION
  13. DILTIAZEM [Suspect]
     Active Substance: DILTIAZEM
     Indication: BLOOD PRESSURE ABNORMAL
  14. BENAZEPRIL [Suspect]
     Active Substance: BENAZEPRIL\BENAZEPRIL HYDROCHLORIDE
     Indication: HYPERTENSION
  15. CYCLOPHOSPHAMIDE. [Suspect]
     Active Substance: CYCLOPHOSPHAMIDE
     Indication: PLASMA CELL MYELOMA
     Dosage: (DF)
  16. HYDRALAZINE [Suspect]
     Active Substance: HYDRALAZINE HYDROCHLORIDE
     Indication: BLOOD PRESSURE MANAGEMENT
  17. CARVEDILOL. [Concomitant]
     Active Substance: CARVEDILOL
  18. EPLERENONE. [Suspect]
     Active Substance: EPLERENONE
     Indication: HYPERTENSION
  19. MELPHALAN [Concomitant]
     Active Substance: MELPHALAN
  20. CITALOPRAM [Concomitant]
     Active Substance: CITALOPRAM HYDROBROMIDE
  21. LABETALOL [Concomitant]
     Active Substance: LABETALOL\LABETALOL HYDROCHLORIDE
  22. NIFEDIPINE. [Suspect]
     Active Substance: NIFEDIPINE
     Indication: HYPERTENSION
  23. THALIDOMIDE [Concomitant]
     Active Substance: THALIDOMIDE

REACTIONS (13)
  - Oedema peripheral [None]
  - Hypertension [None]
  - Pallor [None]
  - Kidney fibrosis [None]
  - Renal artery thrombosis [None]
  - Thrombotic microangiopathy [None]
  - Septic shock [None]
  - Acute kidney injury [None]
  - Glomerulosclerosis [None]
  - Proteinuria [None]
  - Hypovolaemia [None]
  - Malignant neoplasm progression [None]
  - Renal tubular atrophy [None]
